FAERS Safety Report 21832096 (Version 1)
Quarter: 2023Q1

REPORT INFORMATION
  Report Type: Spontaneous
  Country: US (occurrence: None)
  Receive Date: 20230106
  Receipt Date: 20230106
  Transmission Date: 20230418
  Serious: Yes (Hospitalization)
  Sender: FDA-Public Use
  Company Number: None

PATIENT
  Age: 55 Year
  Sex: Male
  Weight: 84.6 kg

DRUGS (2)
  1. PEMBROLIZUMAB [Suspect]
     Active Substance: PEMBROLIZUMAB
     Indication: Renal cell carcinoma
     Dosage: OTHER FREQUENCY : EVERY 21 DAYS;?
     Route: 040
  2. LENVIMA [Concomitant]
     Active Substance: LENVATINIB
     Dates: start: 20221109

REACTIONS (2)
  - Diabetes mellitus [None]
  - Diabetic ketoacidosis [None]

NARRATIVE: CASE EVENT DATE: 20230105
